FAERS Safety Report 7496478-X (Version None)
Quarter: 2011Q2

REPORT INFORMATION
  Report Type: 
  Country: None (occurrence: None)
  Receive Date: 20110523
  Receipt Date: 20110516
  Transmission Date: 20111010
  Serious: Yes (Death, Hospitalization, Other)
  Sender: FDA-Public Use
  Company Number: JP-ROCHE-728351

PATIENT
  Sex: Male

DRUGS (20)
  1. CAMPTOSAR [Suspect]
     Indication: COLON CANCER
     Route: 041
     Dates: start: 20100802, end: 20100823
  2. PASIL [Suspect]
     Indication: PNEUMONIA
     Route: 041
     Dates: start: 20100915, end: 20100920
  3. PASIL [Suspect]
     Dosage: STOP DATE: SEP 2010.
     Route: 041
     Dates: start: 20100925
  4. CEFZON [Suspect]
     Indication: PYREXIA
     Route: 048
     Dates: start: 20100906, end: 20100901
  5. MEROPENEM [Suspect]
     Route: 041
     Dates: start: 20100919, end: 20100924
  6. MEROPENEM [Suspect]
     Dosage: STOP DATE: SEPTEMER 2010.
     Route: 041
     Dates: start: 20100925
  7. TAMSULOSIN HCL [Concomitant]
     Dosage: DOSE FORM: PERORAL AGENT
     Route: 048
     Dates: start: 20090101, end: 20100101
  8. FLUOROURACIL [Suspect]
     Indication: COLON CANCER
     Route: 041
     Dates: start: 20100802, end: 20100823
  9. AMIKACIN SULFATE [Suspect]
     Indication: PNEUMONIA
     Route: 065
     Dates: start: 20100913, end: 20100917
  10. PASIL [Suspect]
     Route: 041
     Dates: start: 20100921, end: 20100925
  11. LEVOFOLINATE [Suspect]
     Indication: COLON CANCER
     Route: 041
     Dates: start: 20100802, end: 20100823
  12. LEVOFLOXACIN [Suspect]
     Indication: PYREXIA
     Route: 048
     Dates: start: 20100830, end: 20100906
  13. MEROPENEM [Suspect]
     Indication: PNEUMONIA
     Route: 041
     Dates: start: 20100913, end: 20100918
  14. MICAFUNGIN [Suspect]
     Indication: PNEUMONIA
     Route: 041
     Dates: start: 20100918, end: 20100921
  15. HACHIAZULE [Concomitant]
     Dosage: DOSE FORM: INCLUDE ASPECT, DRUG NAME: AZULENE SULFONATE SODIUM, UNCERTAIN DOSAGE. STOP: 2010.
     Route: 048
     Dates: start: 20100830
  16. BEVACIZUMAB [Suspect]
     Indication: COLON CANCER
     Route: 041
     Dates: start: 20100802, end: 20100823
  17. SULTAMICILINA [Suspect]
     Indication: PNEUMONIA
     Route: 048
     Dates: start: 20100911, end: 20100912
  18. MYSER [Concomitant]
     Dosage: DOSE ADJUSTED.
     Route: 003
     Dates: start: 20100101, end: 20100101
  19. FLUOROURACIL [Suspect]
     Dosage: ROUTE: INTRAVENOUS DRIP
     Route: 041
     Dates: start: 20100802, end: 20100825
  20. DEXALTIN [Concomitant]
     Dosage: DOSE FORM: OINTMENT AND CREAM, UNCERTAIN DOSAGE, DOSAGE ADJUSTED. STOP DATE: 2010.
     Route: 061
     Dates: start: 20100830

REACTIONS (4)
  - LUNG INFECTION [None]
  - RENAL IMPAIRMENT [None]
  - NASOPHARYNGITIS [None]
  - PNEUMONIA [None]
